FAERS Safety Report 14861577 (Version 1)
Quarter: 2018Q2

REPORT INFORMATION
  Report Type: Spontaneous
  Country: US (occurrence: US)
  Receive Date: 20180508
  Receipt Date: 20180508
  Transmission Date: 20180711
  Serious: No
  Sender: FDA-Public Use
  Company Number: US-PERRIGO-18US003024

PATIENT
  Sex: Male
  Weight: 72.56 kg

DRUGS (2)
  1. PERMETHRIN. [Suspect]
     Active Substance: PERMETHRIN
     Indication: ACARODERMATITIS
     Dosage: 60 G, SINGLE
     Route: 061
     Dates: start: 2017, end: 2017
  2. PERMETHRIN. [Suspect]
     Active Substance: PERMETHRIN
     Dosage: 60 G, SINGLE
     Route: 061
     Dates: start: 2017, end: 2017

REACTIONS (2)
  - Inappropriate schedule of drug administration [Recovered/Resolved]
  - Drug ineffective [Recovered/Resolved]

NARRATIVE: CASE EVENT DATE: 2017
